FAERS Safety Report 4929593-2 (Version None)
Quarter: 2006Q1

REPORT INFORMATION
  Report Type: 
  Country: None (occurrence: None)
  Receive Date: 20060224
  Receipt Date: 20060213
  Transmission Date: 20060701
  Serious: Yes (Hospitalization)
  Sender: FDA-Public Use
  Company Number: 2004240592US

PATIENT
  Age: 56 Year
  Sex: Female
  Weight: 74.8435 kg

DRUGS (6)
  1. SUTENT [Suspect]
     Indication: RENAL CELL CARCINOMA STAGE UNSPECIFIED
     Dosage: 50 MG (50 MG, DAILY TIMES 28 DAYS) ORAL
     Route: 048
     Dates: start: 20040817, end: 20041020
  2. LEXAPRO [Concomitant]
  3. NEXIUM [Concomitant]
  4. XANAX [Concomitant]
  5. MAGIC MOUTHWASH (ALUMINIUM HYDROXIDE, DIPHENHYDRAMINE HYDROCHLORIDE, L [Concomitant]
  6. MOTRIN [Concomitant]

REACTIONS (7)
  - CONVULSION [None]
  - DISEASE PROGRESSION [None]
  - LOSS OF CONSCIOUSNESS [None]
  - RASH [None]
  - REFUSAL OF TREATMENT BY PATIENT [None]
  - REVERSIBLE POSTERIOR LEUKOENCEPHALOPATHY SYNDROME [None]
  - SYNCOPE [None]
